FAERS Safety Report 5898390-6 (Version None)
Quarter: 2008Q3

REPORT INFORMATION
  Report Type: 
  Country: None (occurrence: None)
  Receive Date: 20080925
  Receipt Date: 20071010
  Transmission Date: 20090109
  Serious: No
  Sender: FDA-Public Use
  Company Number: A0687586A

PATIENT
  Age: 45 Year

DRUGS (3)
  1. WELLBUTRIN XL [Suspect]
     Indication: SEASONAL AFFECTIVE DISORDER
     Route: 048
  2. GENERIC MEDICATION [Concomitant]
     Indication: SEASONAL AFFECTIVE DISORDER
  3. DIABETES MEDICATION [Concomitant]

REACTIONS (1)
  - MALAISE [None]
